FAERS Safety Report 5545666-8 (Version None)
Quarter: 2007Q4

REPORT INFORMATION
  Report Type: 
  Country: None (occurrence: None)
  Receive Date: 20071206
  Receipt Date: 20071129
  Transmission Date: 20080405
  Serious: Yes (Life-Threatening, Hospitalization, Disabling)
  Sender: FDA-Public Use
  Company Number: UKP07000240

PATIENT
  Age: 88 Year
  Sex: Female

DRUGS (1)
  1. DIDRONEL [Suspect]
     Indication: OSTEOPOROSIS
     Dosage: 1 TALBET, CYCLIC 1/D, ORAL
     Route: 048
     Dates: start: 20070606, end: 20070714

REACTIONS (1)
  - CEREBROVASCULAR ACCIDENT [None]
